FAERS Safety Report 15780756 (Version 1)
Quarter: 2019Q1

REPORT INFORMATION
  Report Type: Spontaneous
  Country: JP (occurrence: JP)
  Receive Date: 20190102
  Receipt Date: 20190102
  Transmission Date: 20190417
  Serious: Yes (Hospitalization)
  Sender: FDA-Public Use
  Company Number: PHHY2018JP198220

PATIENT
  Age: 13 Year
  Sex: Female

DRUGS (4)
  1. PYRIDOXAL PHOSPHATE [Concomitant]
     Active Substance: PYRIDOXAL PHOSPHATE
     Indication: LATENT TUBERCULOSIS
     Dosage: 20 MG, QD
     Route: 065
  2. ISONIAZID. [Suspect]
     Active Substance: ISONIAZID
     Indication: LATENT TUBERCULOSIS
     Dosage: 200 MG, QD
     Route: 065
  3. ISONIAZID. [Suspect]
     Active Substance: ISONIAZID
     Dosage: 6400 MG, UNK
     Route: 065
  4. PYRIDOXAL PHOSPHATE [Concomitant]
     Active Substance: PYRIDOXAL PHOSPHATE
     Dosage: 3500 MG, UNK
     Route: 065

REACTIONS (4)
  - Suicide attempt [Unknown]
  - Rhabdomyolysis [Unknown]
  - Intentional overdose [Unknown]
  - Status epilepticus [Recovered/Resolved]
